FAERS Safety Report 20988839 (Version 1)
Quarter: 2022Q2

REPORT INFORMATION
  Report Type: Spontaneous
  Country: CA (occurrence: CA)
  Receive Date: 20220621
  Receipt Date: 20220621
  Transmission Date: 20220721
  Serious: Yes (Other)
  Sender: FDA-Public Use
  Company Number: CA-ELI_LILLY_AND_COMPANY-CA202206005124

PATIENT
  Age: 25 Year
  Sex: Female

DRUGS (4)
  1. ZYPREXA [Suspect]
     Active Substance: OLANZAPINE
     Indication: Schizophrenia
     Dosage: UNK, UNKNOWN
     Route: 065
  2. ARIPIPRAZOLE [Suspect]
     Active Substance: ARIPIPRAZOLE
     Indication: Schizophrenia
     Dosage: 1 DOSAGE FORM, UNKNOWN
     Route: 065
  3. QUETIAPINE FUMARATE [Suspect]
     Active Substance: QUETIAPINE FUMARATE
     Indication: Schizophrenia
     Dosage: 1 DOSAGE FORM, UNKNOWN
     Route: 048
  4. ZIPRASIDONE HYDROCHLORIDE [Suspect]
     Active Substance: ZIPRASIDONE HYDROCHLORIDE
     Indication: Schizophrenia
     Dosage: UNK, UNKNOWN
     Route: 065

REACTIONS (12)
  - Orthostatic hypertension [Unknown]
  - Sexual dysfunction [Unknown]
  - Blood prolactin abnormal [Unknown]
  - Metabolic syndrome [Unknown]
  - Dyslipidaemia [Unknown]
  - Weight increased [Unknown]
  - Dystonia [Unknown]
  - Parkinsonism [Unknown]
  - Sedation [Unknown]
  - Akathisia [Unknown]
  - Diabetes mellitus [Unknown]
  - Dyskinesia [Unknown]
